FAERS Safety Report 11761835 (Version 1)
Quarter: 2015Q4

REPORT INFORMATION
  Report Type: Spontaneous
  Country: BG (occurrence: BG)
  Receive Date: 20151120
  Receipt Date: 20151120
  Transmission Date: 20160304
  Serious: Yes (Other)
  Sender: FDA-Public Use
  Company Number: BG-ASTRAZENECA-2015SF13107

PATIENT
  Age: 52 Year
  Sex: Male

DRUGS (2)
  1. ENALAPRIL [Concomitant]
     Active Substance: ENALAPRIL
     Indication: HYPERTENSION
  2. BUDESONIDE/FORMOTEROL [Suspect]
     Active Substance: BUDESONIDE\FORMOTEROL
     Indication: CHRONIC OBSTRUCTIVE PULMONARY DISEASE
     Dosage: 160 MCG/4.5 MCG 2 X 1 INHALATION, DAILY
     Route: 055

REACTIONS (2)
  - Drug dose omission [Unknown]
  - Chronic obstructive pulmonary disease [Unknown]
